FAERS Safety Report 6818273-4 (Version None)
Quarter: 2010Q3

REPORT INFORMATION
  Report Type: 
  Country: None (occurrence: None)
  Receive Date: 20100706
  Receipt Date: 20100701
  Transmission Date: 20110219
  Serious: Yes (Hospitalization)
  Sender: FDA-Public Use
  Company Number: GB-WYE-G06349110

PATIENT
  Age: 22 Year
  Sex: Female

DRUGS (1)
  1. TAZOCIN [Suspect]
     Dosage: UNKNOWN
     Dates: start: 20100410, end: 20100410

REACTIONS (2)
  - ACCIDENTAL EXPOSURE [None]
  - RASH [None]
